FAERS Safety Report 20614821 (Version 4)
Quarter: 2022Q2

REPORT INFORMATION
  Report Type: Report from Study
  Country: US (occurrence: US)
  Receive Date: 20220321
  Receipt Date: 20220506
  Transmission Date: 20220720
  Serious: Yes (Hospitalization)
  Sender: FDA-Public Use
  Company Number: US-NOVOPROD-889513

PATIENT
  Age: 70 Year
  Sex: Male
  Weight: 93 kg

DRUGS (20)
  1. SEMAGLUTIDE [Suspect]
     Active Substance: SEMAGLUTIDE
     Indication: Obesity
     Dosage: 0.5 MG, QW
     Route: 058
     Dates: start: 20190220, end: 20220126
  2. CEPHALEXIN [Concomitant]
     Active Substance: CEPHALEXIN
     Dosage: 500.0,MG,
     Dates: start: 20220114, end: 20220122
  3. CEPHALEXIN [Concomitant]
     Active Substance: CEPHALEXIN
     Dosage: 500MG QID X10 DAYS
     Dates: start: 20220114, end: 20220118
  4. ACETAMINOPHEN\OXYCODONE HYDROCHLORIDE\OXYCODONE TEREPHTHALATE [Concomitant]
     Active Substance: ACETAMINOPHEN\OXYCODONE HYDROCHLORIDE\OXYCODONE TEREPHTHALATE
     Dosage: 5MG-325MG 1-2 TABLETS PRN (NOT TO EXCEED 6/DAY)
     Dates: start: 20220103, end: 20220118
  5. CELEBREX [Concomitant]
     Active Substance: CELECOXIB
     Dosage: 200 MG
     Dates: start: 20220103, end: 20220118
  6. ALLEVESS [Concomitant]
     Active Substance: CAPSAICIN\MENTHOL
     Dosage: 440 MG, BID
     Dates: start: 20220118
  7. TYLENOL [Concomitant]
     Active Substance: ACETAMINOPHEN
  8. ASPIRIN [Concomitant]
     Active Substance: ASPIRIN
     Dosage: 81MG BID
     Dates: start: 20220103
  9. ASPIRIN [Concomitant]
     Active Substance: ASPIRIN
     Dosage: RESUME PRE-OPERATIVE DOSE
     Dates: start: 20220118
  10. NORCO [Concomitant]
     Active Substance: ACETAMINOPHEN\HYDROCODONE BITARTRATE
     Dosage: UNK
     Dates: start: 202201
  11. OMEPRAZOLE [Concomitant]
     Active Substance: OMEPRAZOLE
     Dosage: 40MG
     Dates: start: 20220103, end: 20220118
  12. MEDROL [Concomitant]
     Active Substance: METHYLPREDNISOLONE
     Dosage: UNK
     Dates: start: 20220118
  13. BENADRYL [Concomitant]
     Active Substance: DIPHENHYDRAMINE HYDROCHLORIDE
     Dosage: 25MG Q5 HOURS PRN
     Dates: start: 20220118, end: 202202
  14. COREG [Concomitant]
     Active Substance: CARVEDILOL
     Dosage: 20 MG QD
     Dates: start: 2006
  15. SIMVASTATIN [Concomitant]
     Active Substance: SIMVASTATIN
     Dosage: UNK
     Dates: start: 20220330
  16. SIMVASTATIN [Concomitant]
     Active Substance: SIMVASTATIN
     Dosage: UNK
     Dates: start: 2006, end: 20220208
  17. ROPIVACAINE [Concomitant]
     Active Substance: ROPIVACAINE
     Dosage: 0.2% IN 550 ML PATIENT-CONTROLLED ANALGESIA 6ML/HR + 3ML Q 20 MINUTES PRN X5 DAYS
     Dates: start: 20220103
  18. NIASPAN [Concomitant]
     Active Substance: NIACIN
     Dosage: UNK
     Dates: end: 20220208
  19. IRBESARTAN [Concomitant]
     Active Substance: IRBESARTAN
     Dosage: UNK
     Dates: end: 20220208
  20. CARVEDILOL [Concomitant]
     Active Substance: CARVEDILOL
     Dosage: 20 MG QD
     Dates: start: 2006

REACTIONS (1)
  - Drug-induced liver injury [Recovered/Resolved]

NARRATIVE: CASE EVENT DATE: 20220201
